FAERS Safety Report 7028025-0 (Version None)
Quarter: 2010Q4

REPORT INFORMATION
  Report Type: 
  Country: None (occurrence: None)
  Receive Date: 20101005
  Receipt Date: 20100924
  Transmission Date: 20110411
  Serious: Yes (Hospitalization)
  Sender: FDA-Public Use
  Company Number: BR-BAYER-201014218LA

PATIENT
  Age: 65 Year
  Sex: Female
  Weight: 42 kg

DRUGS (11)
  1. SORAFENIB [Suspect]
     Indication: BREAST CANCER METASTATIC
     Dosage: TOTAL DAILY DOSE: 800 MG  UNIT DOSE: 200 MG
     Route: 048
     Dates: start: 20081118, end: 20090630
  2. SORAFENIB [Suspect]
     Dosage: TOTAL DAILY DOSE: 800 MG  UNIT DOSE: 200 MG
     Route: 048
     Dates: start: 20090712, end: 20090728
  3. SORAFENIB [Suspect]
     Dosage: TOTAL DAILY DOSE: 400 MG  UNIT DOSE: 200 MG
     Route: 048
     Dates: start: 20090728, end: 20091005
  4. TAXOL [Suspect]
     Indication: BREAST CANCER METASTATIC
     Dosage: TOTAL DAILY DOSE: 5.9524 MG/M2  UNIT DOSE: 90 MG/M2
     Route: 042
     Dates: start: 20081118, end: 20090630
  5. TAXOL [Suspect]
     Dosage: TOTAL DAILY DOSE: 5.9524 MG/M2  UNIT DOSE: 90 MG/M2
     Route: 042
     Dates: start: 20090713, end: 20090922
  6. TAXOL [Suspect]
     Dosage: TOTAL DAILY DOSE: 5.9524 MG/M2  UNIT DOSE: 90 MG/M2
     Route: 042
     Dates: start: 20091020, end: 20091020
  7. TAXOL [Suspect]
     Dosage: TOTAL DAILY DOSE: 5.9524 MG/M2  UNIT DOSE: 90 MG/M2
     Route: 042
     Dates: start: 20090929, end: 20091006
  8. PREDNISONE [Concomitant]
     Indication: ASTHMA
     Route: 065
  9. FENOTEROL [Concomitant]
     Indication: ASTHMA
     Route: 065
  10. IPRATROPIUM BROMIDE [Concomitant]
     Indication: ASTHMA
     Route: 065
  11. HYDROCORTISONE [Concomitant]
     Indication: ASTHMA
     Route: 065

REACTIONS (1)
  - ASTHMA [None]
